FAERS Safety Report 24874863 (Version 1)
Quarter: 2025Q1

REPORT INFORMATION
  Report Type: Report from Study
  Country: US (occurrence: US)
  Receive Date: 20250122
  Receipt Date: 20250122
  Transmission Date: 20250408
  Serious: Yes (Other)
  Sender: ALEXION PHARMACEUTICALS
  Company Number: US-AstraZeneca-CH-00785415A

PATIENT
  Age: 51 Year

DRUGS (1)
  1. ULTOMIRIS [Suspect]
     Active Substance: RAVULIZUMAB-CWVZ
     Route: 065

REACTIONS (16)
  - Haemoglobin decreased [Unknown]
  - Platelet count decreased [Unknown]
  - Emotional distress [Unknown]
  - Stress [Unknown]
  - Viral infection [Unknown]
  - Urinary tract infection [Unknown]
  - Urinary incontinence [Unknown]
  - Sneezing [Unknown]
  - Hair texture abnormal [Unknown]
  - Trichotillomania [Unknown]
  - Madarosis [Unknown]
  - Amenorrhoea [Unknown]
  - White blood cell count increased [Unknown]
  - Back pain [Unknown]
  - Peripheral swelling [Unknown]
  - Joint swelling [Unknown]
